FAERS Safety Report 10958355 (Version 1)
Quarter: 2015Q1

REPORT INFORMATION
  Report Type: Report from Study
  Country: US (occurrence: US)
  Receive Date: 20150326
  Receipt Date: 20150326
  Transmission Date: 20150721
  Serious: Yes (Hospitalization, Other)
  Sender: FDA-Public Use
  Company Number: PHEH2015US005506

PATIENT
  Sex: Male
  Weight: 74.83 kg

DRUGS (4)
  1. ALBUTEROL. [Concomitant]
     Active Substance: ALBUTEROL
     Indication: PRODUCT USED FOR UNKNOWN INDICATION
     Route: 065
  2. ADVAIR HFA [Concomitant]
     Active Substance: FLUTICASONE PROPIONATE\SALMETEROL XINAFOATE
     Indication: PRODUCT USED FOR UNKNOWN INDICATION
     Route: 065
  3. TOBI [Suspect]
     Active Substance: TOBRAMYCIN
     Indication: CYSTIC FIBROSIS
     Dosage: 300 MG PER 5 ML BID
     Route: 055
  4. TOBI [Suspect]
     Active Substance: TOBRAMYCIN
     Indication: LUNG DISORDER

REACTIONS (6)
  - Condition aggravated [Recovered/Resolved]
  - Cystic fibrosis [Recovered/Resolved]
  - Epistaxis [Recovered/Resolved]
  - Pneumonia [Recovered/Resolved]
  - Haemoptysis [Recovered/Resolved]
  - Influenza [Recovered/Resolved]
